FAERS Safety Report 11886511 (Version 1)
Quarter: 2016Q1

REPORT INFORMATION
  Report Type: Spontaneous
  Country: IT (occurrence: IT)
  Receive Date: 20160104
  Receipt Date: 20160104
  Transmission Date: 20160526
  Serious: Yes (Hospitalization)
  Sender: FDA-Public Use
  Company Number: IT-BAYER-2015-494869

PATIENT
  Age: 10 Year
  Sex: Male

DRUGS (5)
  1. LASIX [Concomitant]
     Active Substance: FUROSEMIDE
     Dosage: UNK
  2. DINTOINA [Concomitant]
     Active Substance: PHENYTOIN SODIUM
     Dosage: UNK
  3. GARDENALE [Concomitant]
     Active Substance: PHENOBARBITAL
     Dosage: UNK
  4. CIPROXIN [Suspect]
     Active Substance: CIPROFLOXACIN
     Indication: ANTIBIOTIC THERAPY
     Dosage: UNK
  5. TAVOR [LORAZEPAM] [Suspect]
     Active Substance: LORAZEPAM
     Indication: EPILEPSY
     Dosage: UNK

REACTIONS (2)
  - Sopor [Unknown]
  - Urinary retention [Unknown]

NARRATIVE: CASE EVENT DATE: 20151015
